FAERS Safety Report 7783306-8 (Version None)
Quarter: 2011Q3

REPORT INFORMATION
  Report Type: 
  Country: None (occurrence: None)
  Receive Date: 20110928
  Receipt Date: 20110920
  Transmission Date: 20111222
  Serious: Yes (Hospitalization, Disabling, Other)
  Sender: FDA-Public Use
  Company Number: US-BAYER-200933377NA

PATIENT
  Age: 29 Year
  Sex: Female
  Weight: 78.005 kg

DRUGS (13)
  1. TYLENOL SINUS MEDICATION [Concomitant]
  2. RHINABID [Concomitant]
  3. PANTOPRAZOLE [Concomitant]
  4. ASPIRIN [Concomitant]
     Dosage: 81 MG
     Route: 065
  5. TYLENOL COLD [Concomitant]
  6. ANTITHROMBOTIC AGENTS [Concomitant]
  7. YASMIN [Suspect]
     Indication: ORAL CONTRACEPTION
     Route: 048
     Dates: start: 20040101
  8. AMOXICILLIN [Concomitant]
  9. EXCEDRIN (MIGRAINE) [Concomitant]
  10. IBUPROFEN [Concomitant]
  11. AGGRENOX [Concomitant]
  12. PLAVIX [Concomitant]
  13. ZYRTEC [Concomitant]

REACTIONS (8)
  - COGNITIVE DISORDER [None]
  - VISUAL IMPAIRMENT [None]
  - AGRAPHIA [None]
  - ALOPECIA [None]
  - APHASIA [None]
  - LEARNING DISORDER [None]
  - ISCHAEMIC STROKE [None]
  - PAIN [None]
